FAERS Safety Report 5117630-4 (Version None)
Quarter: 2006Q3

REPORT INFORMATION
  Report Type: 
  Country: None (occurrence: None)
  Receive Date: 20060929
  Receipt Date: 20060919
  Transmission Date: 20061208
  Serious: Yes (Other)
  Sender: FDA-Public Use
  Company Number: FR-ABBOTT-06P-056-0344408-00

PATIENT
  Sex: Male

DRUGS (5)
  1. RITONAVIR SOFT GELATIN CAPSULES [Suspect]
     Indication: END STAGE AIDS
  2. TIPRANAVIR [Suspect]
     Indication: END STAGE AIDS
  3. TRIZIVIR [Suspect]
     Indication: END STAGE AIDS
  4. ENFUVIRTIDE [Suspect]
     Indication: END STAGE AIDS
  5. FOSCARNET [Suspect]
     Indication: DRUG USE FOR UNKNOWN INDICATION

REACTIONS (5)
  - DRUG INEFFECTIVE [None]
  - DRUG RESISTANCE [None]
  - IMMUNODEFICIENCY [None]
  - MULTIPLE-DRUG RESISTANCE [None]
  - VIRAL MUTATION IDENTIFIED [None]
